FAERS Safety Report 8250717-6 (Version None)
Quarter: 2012Q2

REPORT INFORMATION
  Report Type: 
  Country: None (occurrence: None)
  Receive Date: 20120402
  Receipt Date: 20120328
  Transmission Date: 20120825
  Serious: Yes (Death, Life-Threatening, Hospitalization)
  Sender: FDA-Public Use
  Company Number: JP-ASTRAZENECA-2011SE78271

PATIENT
  Age: 25099 Day
  Sex: Male

DRUGS (12)
  1. BUFFERIN [Suspect]
     Indication: ACUTE CORONARY SYNDROME
     Route: 048
     Dates: start: 20111019
  2. CARVEDILOL [Suspect]
     Indication: TACHYCARDIA
     Route: 048
     Dates: start: 20111219
  3. LIPITOR [Suspect]
     Indication: HYPERLIPIDAEMIA
     Route: 048
     Dates: start: 20111020
  4. CLARITIN [Suspect]
     Indication: ECZEMA
     Route: 048
     Dates: start: 20111018
  5. MAGNESIUM OXIDE [Suspect]
     Indication: CONSTIPATION
     Dosage: AS REQUIRED
     Route: 048
     Dates: start: 20111024
  6. PLACEBO [Suspect]
     Indication: ACUTE CORONARY SYNDROME
     Dosage: ONCE DAILY
     Route: 048
     Dates: start: 20111019
  7. RINDERON-VG [Suspect]
     Indication: ECZEMA
     Dosage: AS RQUIRED
     Route: 003
  8. LOCOID [Suspect]
     Indication: ECZEMA
     Dosage: AS REQUIRED
     Route: 003
  9. AZD6140 [Suspect]
     Indication: ACUTE CORONARY SYNDROME
     Dosage: TWO TIMES A DAY
     Route: 048
     Dates: start: 20111019
  10. SIGMART [Suspect]
     Indication: CARDIOVASCULAR EVENT PROPHYLAXIS
     Route: 048
     Dates: start: 20111027
  11. FAMOTIDINE [Suspect]
     Indication: GASTRITIS PROPHYLAXIS
     Route: 048
     Dates: start: 20111019
  12. HYDROPHILIC [Suspect]
     Indication: ECZEMA
     Dosage: AS REQUIRED
     Route: 003

REACTIONS (1)
  - ACUTE MYOCARDIAL INFARCTION [None]
